FAERS Safety Report 23386861 (Version 2)
Quarter: 2024Q1

REPORT INFORMATION
  Report Type: Spontaneous
  Country: US (occurrence: US)
  Receive Date: 20240110
  Receipt Date: 20240201
  Transmission Date: 20240410
  Serious: No
  Sender: FDA-Public Use
  Company Number: US-SA-SAC20240105000809

PATIENT
  Age: 57 Year
  Sex: Female

DRUGS (20)
  1. DUPIXENT [Suspect]
     Active Substance: DUPILUMAB
     Indication: Dermatitis atopic
     Dosage: 300 MG, QOW
     Route: 058
     Dates: start: 20221213
  2. ACCOLATE [Concomitant]
     Active Substance: ZAFIRLUKAST
  3. AZELASTINE [Concomitant]
     Active Substance: AZELASTINE\AZELASTINE HYDROCHLORIDE
  4. CLINDAMYCIN [Concomitant]
     Active Substance: CLINDAMYCIN
  5. CLOBETASOL [Concomitant]
     Active Substance: CLOBETASOL
  6. EPINEPHRINE [Concomitant]
     Active Substance: EPINEPHRINE
  7. FOLIC ACID [Concomitant]
     Active Substance: FOLIC ACID
  8. IPRATROPIUM [Concomitant]
     Active Substance: IPRATROPIUM
  9. MUCINEX [Concomitant]
     Active Substance: GUAIFENESIN
     Indication: Sinusitis
  10. NOVOLOG [Concomitant]
     Active Substance: INSULIN ASPART
  11. OTEZLA [Concomitant]
     Active Substance: APREMILAST
  12. PENNSAID [Concomitant]
     Active Substance: DICLOFENAC SODIUM
  13. PREVACID [Concomitant]
     Active Substance: LANSOPRAZOLE
  14. PROAIR RESPICLICK [Concomitant]
     Active Substance: ALBUTEROL SULFATE
  15. SPIRIVA [Concomitant]
     Active Substance: TIOTROPIUM BROMIDE MONOHYDRATE
  16. SUDAFED PE CONGESTION [Concomitant]
     Active Substance: PHENYLEPHRINE HYDROCHLORIDE
  17. SUMATRIPTAN [Concomitant]
     Active Substance: SUMATRIPTAN
  18. VITAMIN B12 [Concomitant]
     Active Substance: CYANOCOBALAMIN
  19. VITAMIN B12 [Concomitant]
     Active Substance: CYANOCOBALAMIN
  20. ZYRTEC [Concomitant]
     Active Substance: CETIRIZINE HYDROCHLORIDE

REACTIONS (2)
  - Sinusitis [Recovering/Resolving]
  - Drug ineffective [Unknown]
